FAERS Safety Report 23700625 (Version 1)
Quarter: 2024Q2

REPORT INFORMATION
  Report Type: Spontaneous
  Country: US (occurrence: US)
  Receive Date: 20240403
  Receipt Date: 20240403
  Transmission Date: 20240715
  Serious: Yes (Other)
  Sender: FDA-Public Use
  Company Number: US-AstraZeneca-CH-00595996A

PATIENT
  Sex: Female

DRUGS (1)
  1. SOLIRIS [Suspect]
     Active Substance: ECULIZUMAB
     Indication: Paroxysmal nocturnal haemoglobinuria
     Dosage: UNK
     Route: 065

REACTIONS (6)
  - Neoplasm malignant [Unknown]
  - Autoimmune thyroiditis [Unknown]
  - Hypokalaemia [Unknown]
  - Muscle atrophy [Unknown]
  - Oxygen saturation decreased [Unknown]
  - Fatigue [Unknown]
